FAERS Safety Report 5675600-1 (Version None)
Quarter: 2008Q1

REPORT INFORMATION
  Report Type: 
  Country: None (occurrence: None)
  Receive Date: 20080321
  Receipt Date: 20080312
  Transmission Date: 20080703
  Serious: Yes (Hospitalization)
  Sender: FDA-Public Use
  Company Number: FR-JNJFOC-20080300194

PATIENT
  Sex: Female

DRUGS (5)
  1. OFLOCET [Suspect]
     Indication: LUNG DISORDER
     Route: 048
  2. REVLIMID [Suspect]
     Indication: MULTIPLE MYELOMA
     Route: 042
  3. VELCADE [Suspect]
     Indication: MULTIPLE MYELOMA
     Route: 042
  4. AUGMENTIN '125' [Suspect]
     Indication: LUNG DISORDER
     Route: 048
  5. DEXAMETHASONE TAB [Concomitant]
     Route: 065

REACTIONS (2)
  - HYPERTHERMIA [None]
  - RASH ERYTHEMATOUS [None]
